FAERS Safety Report 5876671-X (Version None)
Quarter: 2008Q3

REPORT INFORMATION
  Report Type: 
  Country: None (occurrence: None)
  Receive Date: 20080910
  Receipt Date: 20080903
  Transmission Date: 20090109
  Serious: Yes (Other)
  Sender: FDA-Public Use
  Company Number: US-ASTRAZENECA-2008UW18072

PATIENT
  Age: 76 Year
  Sex: Female
  Weight: 41.3 kg

DRUGS (7)
  1. ARIMIDEX [Suspect]
     Indication: BREAST CANCER
     Route: 048
     Dates: start: 20080701
  2. ALPHAGE [Concomitant]
  3. LUMAGEN [Concomitant]
  4. LOTIMAX [Concomitant]
  5. COSEPT [Concomitant]
  6. CITRICAL [Concomitant]
  7. VITAMIN TAB [Concomitant]

REACTIONS (2)
  - FATIGUE [None]
  - GLAUCOMA [None]
